FAERS Safety Report 15628430 (Version 1)
Quarter: 2018Q4

REPORT INFORMATION
  Report Type: Spontaneous
  Country: FR (occurrence: FR)
  Receive Date: 20181116
  Receipt Date: 20181116
  Transmission Date: 20190205
  Serious: Yes (Other)
  Sender: FDA-Public Use
  Company Number: FR-SHIRE-FR201843695

PATIENT

DRUGS (1)
  1. KIOVIG [Suspect]
     Active Substance: HUMAN IMMUNOGLOBULIN G
     Indication: SEGMENTED HYALINISING VASCULITIS
     Dosage: 2000 MG/KG PER CYCLE
     Route: 042

REACTIONS (1)
  - Neutropenia [Unknown]
